FAERS Safety Report 8805053 (Version 2)
Quarter: 2015Q1

REPORT INFORMATION
  Report Type: Report from Study
  Country: US (occurrence: US)
  Receive Date: 20120924
  Receipt Date: 20150303
  Transmission Date: 20150721
  Serious: Yes (Death, Hospitalization)
  Sender: FDA-Public Use
  Company Number: US-ROCHE-1096759

PATIENT
  Age: 63 Year
  Sex: Female

DRUGS (17)
  1. AVASTIN [Suspect]
     Active Substance: BEVACIZUMAB
     Indication: BONE CANCER
  2. FENTANYL. [Concomitant]
     Active Substance: FENTANYL
  3. EMEND [Concomitant]
     Active Substance: APREPITANT
  4. BENTYL [Concomitant]
     Active Substance: DICYCLOMINE HYDROCHLORIDE
  5. AVASTIN [Suspect]
     Active Substance: BEVACIZUMAB
     Indication: BONE CANCER
  6. REGLAN [Concomitant]
     Active Substance: METOCLOPRAMIDE HYDROCHLORIDE
  7. VALIUM [Concomitant]
     Active Substance: DIAZEPAM
     Route: 065
  8. ZOMETA [Concomitant]
     Active Substance: ZOLEDRONIC ACID
  9. ABRAXANE [Concomitant]
     Active Substance: PACLITAXEL
  10. RITALIN [Concomitant]
     Active Substance: METHYLPHENIDATE HYDROCHLORIDE
  11. TRAZODONE [Concomitant]
     Active Substance: TRAZODONE HYDROCHLORIDE
  12. ZOFRAN [Concomitant]
     Active Substance: ONDANSETRON HYDROCHLORIDE
  13. ATIVAN [Concomitant]
     Active Substance: LORAZEPAM
  14. ARANESP [Concomitant]
     Active Substance: DARBEPOETIN ALFA
  15. EFFEXOR EXEL [Concomitant]
  16. AVASTIN [Suspect]
     Active Substance: BEVACIZUMAB
     Indication: BREAST CANCER FEMALE
     Route: 042
  17. PROTONIX (UNITED STATES) [Concomitant]

REACTIONS (28)
  - Decreased appetite [Unknown]
  - Malaise [Unknown]
  - Diarrhoea [Unknown]
  - Abdominal pain [Unknown]
  - Genital swelling [Unknown]
  - Constipation [Unknown]
  - Fatigue [Unknown]
  - Cholelithiasis [Unknown]
  - Peripheral swelling [Unknown]
  - Oedema peripheral [Unknown]
  - Weight decreased [Unknown]
  - Dyspnoea [Unknown]
  - Nausea [Unknown]
  - Malignant ascites [Unknown]
  - Urinary retention [Unknown]
  - Vomiting [Unknown]
  - Abdominal discomfort [Unknown]
  - Pain in jaw [Unknown]
  - Toothache [Unknown]
  - Fungal infection [Unknown]
  - Memory impairment [Unknown]
  - Ascites [Unknown]
  - Osteonecrosis [Unknown]
  - Epistaxis [Unknown]
  - Death [Fatal]
  - Dyspepsia [Unknown]
  - Haematemesis [Unknown]
  - Off label use [Unknown]

NARRATIVE: CASE EVENT DATE: 20070120
